FAERS Safety Report 16537872 (Version 1)
Quarter: 2019Q3

REPORT INFORMATION
  Report Type: Spontaneous
  Country: IT (occurrence: IT)
  Receive Date: 20190708
  Receipt Date: 20190708
  Transmission Date: 20191004
  Serious: Yes (Hospitalization)
  Sender: FDA-Public Use
  Company Number: IT-SA-2019SA173924

PATIENT
  Age: 47 Year
  Sex: Male

DRUGS (1)
  1. LANTUS [Suspect]
     Active Substance: INSULIN GLARGINE
     Indication: DIABETES MELLITUS
     Dosage: 28 IU, PRN
     Route: 058
     Dates: start: 20190101, end: 20190227

REACTIONS (2)
  - Psychomotor hyperactivity [Not Recovered/Not Resolved]
  - Hypoglycaemic coma [Not Recovered/Not Resolved]

NARRATIVE: CASE EVENT DATE: 20190227
